FAERS Safety Report 9892596 (Version 2)
Quarter: 2014Q2

REPORT INFORMATION
  Report Type: Spontaneous
  Country: MX (occurrence: MX)
  Receive Date: 20140212
  Receipt Date: 20140414
  Transmission Date: 20141212
  Serious: Yes (Other)
  Sender: FDA-Public Use
  Company Number: PHHY2014MX016940

PATIENT
  Age: 85 Year
  Sex: Female

DRUGS (3)
  1. EXFORGE [Suspect]
     Indication: HYPERTENSION
     Dosage: UNK UKN(160/5 UKN), UNK
     Dates: start: 201109
  2. RASILEZ [Suspect]
     Indication: HYPERTENSION
     Dosage: 1 DF(300MG), DAILY
     Route: 048
     Dates: start: 20110607, end: 201109
  3. FLUOXETINE [Concomitant]
     Indication: ANTICOAGULANT THERAPY
     Dosage: 1 UKN, DAILY

REACTIONS (15)
  - Arterial occlusive disease [Unknown]
  - Syncope [Unknown]
  - Blood pressure increased [Recovered/Resolved]
  - Blood disorder [Not Recovered/Not Resolved]
  - Cardiac disorder [Not Recovered/Not Resolved]
  - Peripheral swelling [Not Recovered/Not Resolved]
  - Gastric disorder [Not Recovered/Not Resolved]
  - Blood calcium abnormal [Not Recovered/Not Resolved]
  - Anaemia [Not Recovered/Not Resolved]
  - Dysstasia [Unknown]
  - Movement disorder [Unknown]
  - Fatigue [Recovered/Resolved]
  - Arthralgia [Unknown]
  - Malaise [Unknown]
  - Chest pain [Not Recovered/Not Resolved]
